FAERS Safety Report 9282515 (Version 1)
Quarter: 2013Q2

REPORT INFORMATION
  Report Type: Spontaneous
  Country: CA (occurrence: CA)
  Receive Date: 20130510
  Receipt Date: 20130510
  Transmission Date: 20140414
  Serious: Yes (Hospitalization, Other)
  Sender: FDA-Public Use
  Company Number: CA-PFIZER INC-2013141112

PATIENT
  Age: 59 Year
  Sex: Female

DRUGS (1)
  1. CELEBREX [Suspect]
     Dosage: 200 MG, UNK
     Route: 048
     Dates: start: 19990721

REACTIONS (2)
  - Cerebrovascular accident [Unknown]
  - Brain stem infarction [Unknown]
